FAERS Safety Report 9314426 (Version 2)
Quarter: 2013Q2

REPORT INFORMATION
  Report Type: Spontaneous
  Country: US (occurrence: US)
  Receive Date: 20130529
  Receipt Date: 20130614
  Transmission Date: 20140414
  Serious: No
  Sender: FDA-Public Use
  Company Number: US-PFIZER INC-2013161330

PATIENT
  Age: 46 Year
  Sex: Female
  Weight: 52.15 kg

DRUGS (1)
  1. FLAGYL [Suspect]
     Indication: ABNORMAL FAECES
     Dosage: UNK
     Dates: start: 201209, end: 201212

REACTIONS (5)
  - Drug ineffective [Recovered/Resolved]
  - Drug resistance [Unknown]
  - Malaise [Recovered/Resolved]
  - Weight decreased [Unknown]
  - Nausea [Recovered/Resolved]
